FAERS Safety Report 7573019-X (Version None)
Quarter: 2011Q2

REPORT INFORMATION
  Report Type: 
  Country: None (occurrence: None)
  Receive Date: 20110627
  Receipt Date: 20110617
  Transmission Date: 20111010
  Serious: Yes (Hospitalization)
  Sender: FDA-Public Use
  Company Number: US-ASTELLAS-2011US003138

PATIENT
  Age: 69 Year
  Sex: Male
  Weight: 57 kg

DRUGS (5)
  1. ERLOTINIB HYDROCHLORIDE [Suspect]
     Dosage: 50 MG, UID/QD
     Route: 048
     Dates: end: 20110523
  2. GEMCITABINE HYDROCHLORIDE [Suspect]
     Dosage: 750 MG/M2, DAYS 1,8, 15
     Route: 041
     Dates: end: 20110517
  3. ERLOTINIB HYDROCHLORIDE [Suspect]
     Indication: ADENOCARCINOMA PANCREAS
     Dosage: 100 MG, UID/QD
     Route: 048
     Dates: start: 20100427
  4. GEMCITABINE HYDROCHLORIDE [Suspect]
     Indication: ADENOCARCINOMA PANCREAS
     Dosage: 1000 MG/M2, DAYS 1,8,15
     Route: 041
     Dates: start: 20100427
  5. IMC-A12 (A12; CIXUTUMUMAB) [Suspect]
     Indication: ADENOCARCINOMA PANCREAS
     Dosage: 6 MG/KG, DAYS 1,8,15 AND 22
     Route: 041
     Dates: start: 20100427, end: 20110517

REACTIONS (6)
  - HYPOKALAEMIA [None]
  - DEEP VEIN THROMBOSIS [None]
  - FATIGUE [None]
  - DISEASE PROGRESSION [None]
  - ABDOMINAL PAIN [None]
  - NEUTROPENIA [None]
